FAERS Safety Report 7966249-6 (Version None)
Quarter: 2011Q4

REPORT INFORMATION
  Report Type: 
  Country: None (occurrence: None)
  Receive Date: 20111208
  Receipt Date: 20111129
  Transmission Date: 20120403
  Serious: Yes (Hospitalization, Other)
  Sender: FDA-Public Use
  Company Number: PHEH2011US00461

PATIENT
  Sex: Female

DRUGS (9)
  1. ZOMETA [Suspect]
  2. METOPROLOL SUCCINATE [Concomitant]
     Dosage: 25 MG, QD
  3. XELODA [Concomitant]
  4. PERIDEX [Concomitant]
  5. HYDROXYZINE [Concomitant]
     Dosage: 10 MG, TID
     Dates: start: 20101214
  6. AREDIA [Suspect]
  7. CELEBREX [Concomitant]
     Dosage: 100 MG,
     Route: 048
     Dates: start: 20101229
  8. CYCLOBENZAPRINE [Concomitant]
     Dosage: 10 MG, PRN
     Route: 048
  9. DARVOCET-N 50 [Concomitant]
     Dosage: 1 DF, PRN

REACTIONS (57)
  - PAIN [None]
  - HYPOVOLAEMIA [None]
  - URINARY TRACT INFECTION [None]
  - BRONCHOSPASM [None]
  - OSTEOPENIA [None]
  - INJURY [None]
  - ARTHRITIS [None]
  - INTERVERTEBRAL DISC DEGENERATION [None]
  - BONE PAIN [None]
  - ODYNOPHAGIA [None]
  - OEDEMA [None]
  - CATARACT [None]
  - METASTASES TO BONE [None]
  - HAEMATURIA [None]
  - SCOLIOSIS [None]
  - PYELONEPHRITIS [None]
  - HYPERCALCAEMIA [None]
  - ESSENTIAL HYPERTENSION [None]
  - METASTASES TO SPINE [None]
  - HAEMANGIOMA OF LIVER [None]
  - MYALGIA [None]
  - PATHOLOGICAL FRACTURE [None]
  - CERUMEN IMPACTION [None]
  - OSTEONECROSIS OF JAW [None]
  - EXPOSED BONE IN JAW [None]
  - HAEMORRHAGE [None]
  - HEPATIC LESION [None]
  - ACTINIC KERATOSIS [None]
  - DEPRESSION [None]
  - HEPATIC CYST [None]
  - CYSTITIS NONINFECTIVE [None]
  - ABDOMINAL PAIN [None]
  - GASTROENTERITIS [None]
  - VOMITING [None]
  - ORAL CANDIDIASIS [None]
  - RASH [None]
  - SINUSITIS [None]
  - ASTHENIA [None]
  - SEBORRHOEIC KERATOSIS [None]
  - MUSCULOSKELETAL CHEST PAIN [None]
  - CONSTIPATION [None]
  - FALL [None]
  - ARTHRALGIA [None]
  - ANHEDONIA [None]
  - BONE NEOPLASM MALIGNANT [None]
  - FACIAL PAIN [None]
  - DYSURIA [None]
  - LUNG NEOPLASM [None]
  - PAIN IN JAW [None]
  - OEDEMA PERIPHERAL [None]
  - PELVIC FRACTURE [None]
  - GINGIVAL PAIN [None]
  - POLYP [None]
  - ANXIETY [None]
  - OSTEOPOROSIS [None]
  - SMALL INTESTINAL OBSTRUCTION [None]
  - CHEST DISCOMFORT [None]
